FAERS Safety Report 21512504 (Version 1)
Quarter: 2022Q4

REPORT INFORMATION
  Report Type: Report from Study
  Country: US (occurrence: US)
  Receive Date: 20221027
  Receipt Date: 20221027
  Transmission Date: 20230112
  Serious: No
  Sender: FDA-Public Use
  Company Number: US-ABBVIE-4173805

PATIENT
  Sex: Female

DRUGS (7)
  1. VENCLEXTA [Suspect]
     Active Substance: VENETOCLAX
     Indication: Chronic lymphocytic leukaemia
     Route: 048
     Dates: start: 20220427
  2. 100 mg Metoprolol succinate [Concomitant]
     Indication: Product used for unknown indication
  3. 10 mg Prochlorperazine maleate [Concomitant]
     Indication: Product used for unknown indication
  4. 0.5 mg Clonazepam [Concomitant]
     Indication: Product used for unknown indication
  5. LACTOBACILLUS ACIDOPHILUS [Concomitant]
     Active Substance: LACTOBACILLUS ACIDOPHILUS
     Indication: Product used for unknown indication
  6. 400 mg Acyclovir [Concomitant]
     Indication: Product used for unknown indication
  7. 10 mg Diazepam [Concomitant]
     Indication: Product used for unknown indication

REACTIONS (1)
  - Nasopharyngitis [Not Recovered/Not Resolved]

NARRATIVE: CASE EVENT DATE: 20220101
